FAERS Safety Report 12631300 (Version 2)
Quarter: 2016Q3

REPORT INFORMATION
  Report Type: Spontaneous
  Country: US (occurrence: US)
  Receive Date: 20160808
  Receipt Date: 20160808
  Transmission Date: 20161109
  Serious: No
  Sender: FDA-Public Use
  Company Number: US-BEH-2015053213

PATIENT
  Sex: Female
  Weight: 56 kg

DRUGS (30)
  1. EPIPEN [Concomitant]
     Active Substance: EPINEPHRINE
     Indication: ANAPHYLACTIC REACTION
  2. NEXIUM [Concomitant]
     Active Substance: ESOMEPRAZOLE MAGNESIUM
  3. NITROGLYCERIN. [Concomitant]
     Active Substance: NITROGLYCERIN
  4. HIZENTRA [Suspect]
     Active Substance: HUMAN IMMUNOGLOBULIN G
     Indication: IMMUNODEFICIENCY COMMON VARIABLE
     Dosage: 2 GM 10 ML VIAL
     Route: 058
  5. ACYCLOVIR. [Concomitant]
     Active Substance: ACYCLOVIR
  6. ZOLOFT [Concomitant]
     Active Substance: SERTRALINE HYDROCHLORIDE
  7. DOXYCYCLINE. [Concomitant]
     Active Substance: DOXYCYCLINE
  8. OPANA [Concomitant]
     Active Substance: OXYMORPHONE HYDROCHLORIDE
  9. ASPIRIN. [Concomitant]
     Active Substance: ASPIRIN
  10. PROAIR HFA [Concomitant]
     Active Substance: ALBUTEROL SULFATE
  11. NIACIN. [Concomitant]
     Active Substance: NIACIN
  12. POTASSIUM [Concomitant]
     Active Substance: POTASSIUM
  13. PROMETHAZINE [Concomitant]
     Active Substance: PROMETHAZINE\PROMETHAZINE HYDROCHLORIDE
  14. CYMBALTA [Concomitant]
     Active Substance: DULOXETINE HYDROCHLORIDE
  15. GABAPENTIN. [Concomitant]
     Active Substance: GABAPENTIN
  16. ZANAFLEX [Concomitant]
     Active Substance: TIZANIDINE HYDROCHLORIDE
  17. CYANOCOBALAMIN. [Concomitant]
     Active Substance: CYANOCOBALAMIN
  18. DIPHENHYDRAMINE. [Concomitant]
     Active Substance: DIPHENHYDRAMINE
  19. LIDOCAINE/PRILOCAINE [Concomitant]
     Active Substance: LIDOCAINE\PRILOCAINE
  20. OXYGEN. [Concomitant]
     Active Substance: OXYGEN
  21. BENADRYL [Concomitant]
     Active Substance: DIPHENHYDRAMINE HYDROCHLORIDE
  22. ADVAIR HFA [Concomitant]
     Active Substance: FLUTICASONE PROPIONATE\SALMETEROL XINAFOATE
  23. IBUPROFEN. [Concomitant]
     Active Substance: IBUPROFEN
  24. VITAMIN D [Concomitant]
     Active Substance: CHOLECALCIFEROL
  25. TRAZODONE [Concomitant]
     Active Substance: TRAZODONE HYDROCHLORIDE
  26. HIZENTRA [Suspect]
     Active Substance: HUMAN IMMUNOGLOBULIN G
     Dosage: 4 GM  20 ML VIAL
     Route: 058
  27. LUNESTA [Concomitant]
     Active Substance: ESZOPICLONE
  28. ATENOLOL. [Concomitant]
     Active Substance: ATENOLOL
  29. SPIRIVA [Concomitant]
     Active Substance: TIOTROPIUM BROMIDE MONOHYDRATE
  30. CARDIZEM [Concomitant]
     Active Substance: DILTIAZEM HYDROCHLORIDE

REACTIONS (2)
  - Sluggishness [Unknown]
  - Headache [Unknown]
